FAERS Safety Report 5728849-3 (Version None)
Quarter: 2008Q2

REPORT INFORMATION
  Report Type: 
  Country: None (occurrence: None)
  Receive Date: 20080430
  Receipt Date: 20060727
  Transmission Date: 20081010
  Serious: Yes (Hospitalization)
  Sender: FDA-Public Use
  Company Number: E3810-00092-SPO-AU

PATIENT
  Age: 71 Year
  Sex: Female

DRUGS (5)
  1. RABEPRAZOLE SODIUM [Suspect]
     Dosage: 20 MG, 1 IN 1 D, ORAL
     Route: 048
     Dates: start: 20060527, end: 20060528
  2. ASTRIX (ACETYLSALICYLIC ACID) [Concomitant]
  3. MULTIVITAMIN [Concomitant]
  4. ATAC TRIAL [Concomitant]
  5. LERCANIDIPINE [Concomitant]

REACTIONS (3)
  - OEDEMA PERIPHERAL [None]
  - PAIN [None]
  - PAIN IN EXTREMITY [None]
